FAERS Safety Report 6826083-7 (Version None)
Quarter: 2010Q3

REPORT INFORMATION
  Report Type: 
  Country: None (occurrence: None)
  Receive Date: 20100709
  Receipt Date: 20100608
  Transmission Date: 20110219
  Serious: No
  Sender: FDA-Public Use
  Company Number: US-BAYER-201016730BCC

PATIENT
  Age: 16 Year
  Sex: Female
  Weight: 59 kg

DRUGS (2)
  1. MIDOL [Suspect]
     Indication: MENSTRUAL DISORDER
     Dosage: 2 MIDOL ONE OR TWO TIMES PER MONTH
     Route: 048
  2. MINOCYCLINE [Concomitant]

REACTIONS (4)
  - BURNING SENSATION [None]
  - DYSPHAGIA [None]
  - MOUTH ULCERATION [None]
  - ORAL PAIN [None]
